FAERS Safety Report 8908313 (Version 1)
Quarter: 2012Q4

REPORT INFORMATION
  Report Type: 
  Country: US (occurrence: US)
  Receive Date: 20121114
  Receipt Date: 20121114
  Transmission Date: 20130627
  Serious: Yes (Other)
  Sender: FDA-Public Use
  Company Number: CHPA2012US023319

PATIENT
  Age: 55 Year
  Sex: Female

DRUGS (1)
  1. KERI ORIGINAL [Suspect]
     Indication: DRY SKIN
     Dosage: UNK, DAILY AFTER SHOWER
     Route: 061
     Dates: start: 1992

REACTIONS (1)
  - Nasopharyngitis [Unknown]
